FAERS Safety Report 25720270 (Version 1)
Quarter: 2025Q3

REPORT INFORMATION
  Report Type: Spontaneous
  Country: US (occurrence: US)
  Receive Date: 20250825
  Receipt Date: 20250825
  Transmission Date: 20251020
  Serious: No
  Sender: SANOFI AVENTIS
  Company Number: US-SA-2025SA251955

PATIENT
  Sex: Male

DRUGS (9)
  1. DUPIXENT [Suspect]
     Active Substance: DUPILUMAB
     Indication: Dermatitis atopic
     Dosage: 300 MG, QOW
     Route: 058
  2. ALBUTEROL SULFATE [Concomitant]
     Active Substance: ALBUTEROL SULFATE
  3. COLACE [Concomitant]
     Active Substance: DOCUSATE SODIUM
  4. ELIQUIS [Concomitant]
     Active Substance: APIXABAN
  5. OMEPRAZOLE [Concomitant]
     Active Substance: OMEPRAZOLE
  6. PREDNISONE [Concomitant]
     Active Substance: PREDNISONE
  7. ZYRTEC [Concomitant]
     Active Substance: CETIRIZINE HYDROCHLORIDE
  8. DOXYCYCLINE [Concomitant]
     Active Substance: DOXYCYCLINE
  9. SUMATRIPTAN [Concomitant]
     Active Substance: SUMATRIPTAN

REACTIONS (2)
  - Illness [Unknown]
  - Product dose omission in error [Unknown]
